FAERS Safety Report 5015136-4 (Version None)
Quarter: 2006Q2

REPORT INFORMATION
  Report Type: 
  Country: None (occurrence: None)
  Receive Date: 20060530
  Receipt Date: 20060518
  Transmission Date: 20061013
  Serious: Yes (Death, Hospitalization)
  Sender: FDA-Public Use
  Company Number: 310001M06GRC

PATIENT
  Age: 29 Year
  Sex: Female
  Weight: 100 kg

DRUGS (6)
  1. GONAL-F [Suspect]
     Indication: OVULATION INDUCTION
     Dosage: 225, 2 IN 1 WEEKS, SUBCUTANEOUS; SEE IMAGE
     Route: 058
     Dates: start: 20060503, end: 20060515
  2. OVIDREL                (CHORIOGONADOTROPIN ALFA FOR INJECTION) [Suspect]
     Dosage: 6500, 1 IN 1 WEEKS, SUBCUTANEOUS
     Route: 058
     Dates: start: 20060510, end: 20060515
  3. ANALGESICS [Concomitant]
  4. DICLOFENAC SODIUM [Concomitant]
  5. DOXYCYCLINE HYCLATE [Concomitant]
  6. DEXAMETHASONE SODIUM PHOSPHATE [Concomitant]

REACTIONS (10)
  - ABDOMINAL PAIN UPPER [None]
  - ACUTE RESPIRATORY DISTRESS SYNDROME [None]
  - BLOOD AMYLASE INCREASED [None]
  - BLOOD CREATININE INCREASED [None]
  - MULTI-ORGAN FAILURE [None]
  - NAUSEA [None]
  - OLIGURIA [None]
  - PELVIC FLUID COLLECTION [None]
  - SHOCK [None]
  - TRANSAMINASES INCREASED [None]
